FAERS Safety Report 5141749-5 (Version None)
Quarter: 2006Q4

REPORT INFORMATION
  Report Type: 
  Country: None (occurrence: None)
  Receive Date: 20061027
  Receipt Date: 20061006
  Transmission Date: 20070319
  Serious: Yes (Hospitalization)
  Sender: FDA-Public Use
  Company Number: ES200607004957

PATIENT
  Age: 14 Year
  Sex: Male
  Weight: 100 kg

DRUGS (5)
  1. SOMATROPIN (SOMATROPIN) VIAL [Suspect]
     Indication: GROWTH HORMONE DEFICIENCY
     Dosage: 0.62 WEEKLY (1/W), SUBCUTANEOUS
     Route: 058
     Dates: start: 20050201, end: 20060721
  2. EUTIROX (LEVOTHYROXINE) [Concomitant]
  3. DESOPRESSIN (DESMOPRESSIN) [Concomitant]
  4. HYDROCORTISONE [Concomitant]
  5. TESTOSTERONE [Concomitant]

REACTIONS (3)
  - EPIPHYSIOLYSIS [None]
  - FATIGUE [None]
  - GAIT DISTURBANCE [None]
